FAERS Safety Report 6937751-0 (Version None)
Quarter: 2010Q3

REPORT INFORMATION
  Report Type: 
  Country: None (occurrence: None)
  Receive Date: 20100820
  Receipt Date: 20100820
  Transmission Date: 20110219
  Serious: Yes (Life-Threatening, Other)
  Sender: FDA-Public Use
  Company Number: None

PATIENT
  Age: 25 Year
  Sex: Female
  Weight: 54.4316 kg

DRUGS (1)
  1. CHANTIX [Suspect]
     Indication: SMOKING CESSATION THERAPY
     Dosage: 0.5 MG STAGGERED PO
     Route: 048
     Dates: start: 20100224, end: 20100420

REACTIONS (4)
  - DEPRESSION [None]
  - RASH [None]
  - SUICIDAL IDEATION [None]
  - SWELLING FACE [None]
